FAERS Safety Report 6315693-1 (Version None)
Quarter: 2009Q3

REPORT INFORMATION
  Report Type: 
  Country: None (occurrence: None)
  Receive Date: 20090818
  Receipt Date: 20090803
  Transmission Date: 20100115
  Serious: Yes (Hospitalization)
  Sender: FDA-Public Use
  Company Number: POMP-1000487

PATIENT
  Age: 3 Year
  Sex: Male
  Weight: 13.7 kg

DRUGS (31)
  1. MYOZYME [Suspect]
     Indication: GLYCOGEN STORAGE DISEASE TYPE II
     Dosage: 20 MG/KG, Q2W, INTRAVENOUS; 30 MG/KG, Q2W, INTRAVENOUS; 40 MG/KG, Q2W, INTRAVENOUS
     Route: 042
     Dates: start: 20060911, end: 20070501
  2. MYOZYME [Suspect]
     Indication: GLYCOGEN STORAGE DISEASE TYPE II
     Dosage: 20 MG/KG, Q2W, INTRAVENOUS; 30 MG/KG, Q2W, INTRAVENOUS; 40 MG/KG, Q2W, INTRAVENOUS
     Route: 042
     Dates: start: 20070509, end: 20070701
  3. MYOZYME [Suspect]
     Indication: GLYCOGEN STORAGE DISEASE TYPE II
     Dosage: 20 MG/KG, Q2W, INTRAVENOUS; 30 MG/KG, Q2W, INTRAVENOUS; 40 MG/KG, Q2W, INTRAVENOUS
     Route: 042
     Dates: start: 20070801
  4. VENOFER [Suspect]
     Indication: ANAEMIA
     Dosage: 12 MG, INTRAVENOUS
     Route: 042
     Dates: start: 20070201
  5. BENADRYL [Concomitant]
  6. SOLOU-CORTEF (HYDROCORTISONE SODIUM SUCCINATE) [Concomitant]
  7. TYLENOL [Concomitant]
  8. CALCIUM GLUBIONATE (CALCIUM GLIBIONATE) [Concomitant]
  9. EUCERIN (OMEGA-6 FATTY ACIDS) [Concomitant]
  10. EPIPEN (EPINEPHRINE HYDROCHLORIDE) [Concomitant]
  11. PROCRIT [Concomitant]
  12. ERGOCALCIFEROL CALCIUM PHOSPHATE, CALCIUM SODIUM LACTATE) [Concomitant]
  13. FLECAINIDE ACETATE [Concomitant]
  14. HYDROCORTONE [Concomitant]
  15. IBUPROFEN [Concomitant]
  16. IMMUNE GLOBULIN (IMMUNOGLOBULIN) [Concomitant]
  17. PREVACID [Concomitant]
  18. XOPENEX (LEVOSALBUTAMOL) INHALATION GAS [Concomitant]
  19. METHOTREXATE [Concomitant]
  20. SULFAMETHOXAZOLE W (SULFAMETHOXAZOLE, TRIMETHOPRIM) [Concomitant]
  21. SPIRONOLACTONE [Concomitant]
  22. LIDOCAINE [Concomitant]
  23. LANSOPRAZOLE [Concomitant]
  24. BACTRIM [Concomitant]
  25. MUPIROCIN [Concomitant]
  26. NYSTATIN [Concomitant]
  27. LACTOBACILLUS RHAMNOSUS (LACTOBACILLUS RHAMNOSUS) CAPSULE [Concomitant]
  28. SODIUM CHLORIDE (SODIUM CHLORIDE) PROLONGED-RELEASE CAPSULE [Concomitant]
  29. ETHANOL (ETHANOL) [Concomitant]
  30. POTASSIUM PHOSPHATE DIBASIC (POTASSIUM PHOSPHATE DIBASIC) [Concomitant]
  31. ROCEPHIN [Concomitant]

REACTIONS (20)
  - BAND NEUTROPHIL PERCENTAGE DECREASED [None]
  - BLOOD IMMUNOGLOBULIN G DECREASED [None]
  - CENTRAL LINE INFECTION [None]
  - DIARRHOEA [None]
  - FALL [None]
  - GASTROENTERITIS VIRAL [None]
  - HAEMOGLOBIN DECREASED [None]
  - HEART RATE INCREASED [None]
  - INCREASED UPPER AIRWAY SECRETION [None]
  - INFUSION RELATED REACTION [None]
  - LYMPHOCYTE PERCENTAGE INCREASED [None]
  - MONOCYTE PERCENTAGE INCREASED [None]
  - NAUSEA [None]
  - PSEUDOMONAL BACTERAEMIA [None]
  - RESPIRATORY RATE INCREASED [None]
  - RETCHING [None]
  - STAPHYLOCOCCAL INFECTION [None]
  - TRACHEOBRONCHITIS [None]
  - UPPER LIMB FRACTURE [None]
  - VOMITING [None]
